FAERS Safety Report 9227673 (Version 1)
Quarter: 2013Q2

REPORT INFORMATION
  Report Type: Spontaneous
  Country: AT (occurrence: AT)
  Receive Date: 20130412
  Receipt Date: 20130412
  Transmission Date: 20140414
  Serious: Yes (Death)
  Sender: FDA-Public Use
  Company Number: AT-BAXTER-2013BAX012697

PATIENT
  Age: 56 Year
  Sex: Male

DRUGS (7)
  1. ENDOXAN ^BAXTER^ 1G - TROCKENSTECHAMPULLE [Suspect]
     Indication: T-CELL LYMPHOMA
  2. DOXORUBICIN [Suspect]
     Indication: T-CELL LYMPHOMA
  3. VINCRISTINE [Suspect]
     Indication: T-CELL LYMPHOMA
  4. PREDNISONE [Suspect]
     Indication: T-CELL LYMPHOMA
  5. ALEMTUZUMAB [Suspect]
     Indication: T-CELL LYMPHOMA
  6. VALGANCICLOVIR [Suspect]
     Indication: ANTIVIRAL PROPHYLAXIS
  7. POSACONAZOLE [Suspect]
     Indication: PROPHYLAXIS

REACTIONS (2)
  - Pulmonary mycosis [Fatal]
  - Multi-organ failure [Fatal]
